FAERS Safety Report 25540205 (Version 2)
Quarter: 2025Q3

REPORT INFORMATION
  Report Type: Spontaneous
  Country: US (occurrence: US)
  Receive Date: 20250710
  Receipt Date: 20250721
  Transmission Date: 20251020
  Serious: Yes (Other)
  Sender: AMGEN
  Company Number: US-AMGEN-USASP2025132781

PATIENT
  Age: 43 Year
  Sex: Female

DRUGS (47)
  1. TEPEZZA [Suspect]
     Active Substance: TEPROTUMUMAB-TRBW
     Indication: Graves^ disease
     Route: 040
     Dates: start: 20220929, end: 20220929
  2. TEPEZZA [Suspect]
     Active Substance: TEPROTUMUMAB-TRBW
     Indication: Endocrine ophthalmopathy
     Dosage: 2225 MILLIGRAM, Q3WK (20 MG/KG) (SECOND DOSE)
     Route: 040
     Dates: start: 20221020, end: 20221020
  3. TEPEZZA [Suspect]
     Active Substance: TEPROTUMUMAB-TRBW
     Indication: Eye disorder
     Dosage: 2167 MILLIGRAM, Q3WK (20 MG/KG) (THIRD DOSE)
     Route: 040
     Dates: start: 20221110, end: 20221110
  4. TEPEZZA [Suspect]
     Active Substance: TEPROTUMUMAB-TRBW
     Dosage: 2168 MILLIGRAM, Q3WK (20 MG/KG) (FOURTH DOSE)
     Route: 040
     Dates: start: 20221201, end: 20221201
  5. TEPEZZA [Suspect]
     Active Substance: TEPROTUMUMAB-TRBW
     Dosage: 2149 MILLIGRAM, Q3WK (20 MG/KG) (FIFTH DOSE)
     Route: 040
     Dates: start: 20221230, end: 20221230
  6. TEPEZZA [Suspect]
     Active Substance: TEPROTUMUMAB-TRBW
     Dosage: 2077 MILLIGRAM, Q3WK (20 MG/KG) (SIXTH DOSE)
     Route: 040
     Dates: start: 20230208, end: 20230208
  7. TEPEZZA [Suspect]
     Active Substance: TEPROTUMUMAB-TRBW
     Dosage: 2080 MILLIGRAM, Q3WK (20 MG/KG) (SEVENTH DOSE)
     Route: 040
     Dates: start: 20230301, end: 20230301
  8. TEPEZZA [Suspect]
     Active Substance: TEPROTUMUMAB-TRBW
     Dosage: 2000 MILLIGRAM, Q3WK (20 MG/KG) (LAST EIGHTH/ DOSE)
     Route: 040
     Dates: start: 20230322, end: 20230322
  9. KLONOPIN [Concomitant]
     Active Substance: CLONAZEPAM
     Indication: Anxiety
     Dosage: 1 MILLIGRAM, QD
     Route: 048
     Dates: start: 20220223
  10. ULTRAM [Concomitant]
     Active Substance: TRAMADOL HYDROCHLORIDE
     Dosage: 50 MILLIGRAM, TID
     Route: 048
     Dates: start: 20220303
  11. ACETAMINOPHEN\HYDROCODONE [Concomitant]
     Active Substance: ACETAMINOPHEN\HYDROCODONE
     Route: 065
     Dates: start: 20220412
  12. TAPAZOLE [Concomitant]
     Active Substance: METHIMAZOLE
     Dosage: 20 MILLIGRAM, QD
     Route: 048
     Dates: start: 20220929, end: 20221128
  13. TAPAZOLE [Concomitant]
     Active Substance: METHIMAZOLE
     Dosage: 5 MILLIGRAM, QD
     Route: 048
     Dates: start: 20240718, end: 20240718
  14. TENORMIN [Concomitant]
     Active Substance: ATENOLOL
     Dosage: 25 MILLIGRAM, QD
     Route: 048
     Dates: start: 20220929, end: 20221228
  15. SODIUM CHLORIDE [Concomitant]
     Active Substance: SODIUM CHLORIDE
     Route: 065
     Dates: start: 20220929
  16. SODIUM CHLORIDE [Concomitant]
     Active Substance: SODIUM CHLORIDE
     Route: 065
     Dates: start: 20221020
  17. SODIUM CHLORIDE [Concomitant]
     Active Substance: SODIUM CHLORIDE
     Route: 065
     Dates: start: 20221110
  18. SODIUM CHLORIDE [Concomitant]
     Active Substance: SODIUM CHLORIDE
     Route: 065
     Dates: start: 20221201
  19. SODIUM CHLORIDE [Concomitant]
     Active Substance: SODIUM CHLORIDE
     Route: 065
     Dates: start: 20221230
  20. SODIUM CHLORIDE [Concomitant]
     Active Substance: SODIUM CHLORIDE
     Route: 065
     Dates: start: 20230208
  21. SODIUM CHLORIDE [Concomitant]
     Active Substance: SODIUM CHLORIDE
     Route: 065
     Dates: start: 20230301
  22. SODIUM CHLORIDE [Concomitant]
     Active Substance: SODIUM CHLORIDE
  23. NEURONTIN [Concomitant]
     Active Substance: GABAPENTIN
     Dosage: 300 MILLIGRAM, BID
     Route: 048
     Dates: start: 20221010
  24. LOPRESSOR [Concomitant]
     Active Substance: METOPROLOL TARTRATE
     Dosage: 25 MILLIGRAM, BID
     Route: 048
     Dates: start: 20221010
  25. ROXICODONE [Concomitant]
     Active Substance: OXYCODONE HYDROCHLORIDE
     Route: 065
     Dates: start: 20221010
  26. PHENERGAN [Concomitant]
     Active Substance: PROMETHAZINE HYDROCHLORIDE
     Dates: start: 20221213
  27. UBRELVY [Concomitant]
     Active Substance: UBROGEPANT
     Route: 048
     Dates: start: 20230509
  28. QUVIVIQ [Concomitant]
     Active Substance: DARIDOREXANT
     Dosage: 50 MILLIGRAM, QD (NIGHTLY)
     Route: 048
     Dates: start: 20230914
  29. MACROBID [Concomitant]
     Active Substance: NITROFURANTOIN\NITROFURANTOIN MONOHYDRATE
     Dosage: 100 MILLIGRAM, BID
     Route: 048
     Dates: start: 20230720
  30. ZOFRAN [Concomitant]
     Active Substance: ONDANSETRON HYDROCHLORIDE
     Dosage: 4 MILLIGRAM, Q8H
     Route: 048
     Dates: start: 20230819
  31. PROTONIX [Concomitant]
     Active Substance: PANTOPRAZOLE SODIUM
     Dosage: 40 MILLIGRAM, QD ( EVERY MORNING BEFORE BREAKFAST)
     Route: 048
     Dates: start: 20240508, end: 20240508
  32. FLAGYL [Concomitant]
     Active Substance: METRONIDAZOLE\METRONIDAZOLE HYDROCHLORIDE
     Route: 065
     Dates: start: 20240418
  33. PROMETHAZINE DM [Concomitant]
     Active Substance: DEXTROMETHORPHAN HYDROBROMIDE\PROMETHAZINE HYDROCHLORIDE
     Route: 065
     Dates: start: 20231228
  34. INFLUENZA VIRUS VACCINE [Concomitant]
     Active Substance: INFLUENZA VIRUS VACCINE
     Route: 065
     Dates: start: 20241107
  35. RESTASIS [Concomitant]
     Active Substance: CYCLOSPORINE
     Dosage: 1 DROP, BID
     Route: 047
     Dates: start: 20230509, end: 20240508
  36. FLEXERIL [Concomitant]
     Active Substance: CYCLOBENZAPRINE HYDROCHLORIDE
     Indication: Muscle spasms
     Dosage: 10 MILLIGRAM, QD (NIGHTLY)
     Route: 048
     Dates: start: 20230509, end: 20230623
  37. LIDOCAINE [Concomitant]
     Active Substance: LIDOCAINE
     Route: 040
     Dates: start: 20240508
  38. DIPRIVAN [Concomitant]
     Active Substance: PROPOFOL
     Route: 040
     Dates: start: 20240508
  39. DIPRIVAN [Concomitant]
     Active Substance: PROPOFOL
     Route: 040
     Dates: start: 20240508
  40. SUBLIMAZE [Concomitant]
     Active Substance: FENTANYL CITRATE
     Route: 040
     Dates: start: 20240508
  41. ATROPINE [Concomitant]
     Active Substance: ATROPINE
     Route: 040
     Dates: start: 20240508, end: 20240509
  42. DEXTROSE [Concomitant]
     Active Substance: DEXTROSE MONOHYDRATE
     Route: 040
     Dates: start: 20240508, end: 20240509
  43. ROMAZICON [Concomitant]
     Active Substance: FLUMAZENIL
     Route: 040
     Dates: start: 20240508, end: 20240509
  44. LACTATED RINGERS SOLUTION [Concomitant]
     Active Substance: CALCIUM CHLORIDE\POTASSIUM CHLORIDE\SODIUM CHLORIDE\SODIUM LACTATE
     Route: 040
     Dates: start: 20240508, end: 20240509
  45. VERSED [Concomitant]
     Active Substance: MIDAZOLAM HYDROCHLORIDE
     Route: 040
     Dates: start: 20240508, end: 20240509
  46. NARCAN [Concomitant]
     Active Substance: NALOXONE HYDROCHLORIDE
     Route: 040
     Dates: start: 20240508, end: 20240509
  47. Fleet [Concomitant]
     Route: 054
     Dates: start: 20240508, end: 20240509

REACTIONS (66)
  - Deafness neurosensory [Not Recovered/Not Resolved]
  - Endocrine ophthalmopathy [Unknown]
  - Graves^ disease [Unknown]
  - Haematochezia [Unknown]
  - Rectal haemorrhage [Unknown]
  - Chronic kidney disease [Unknown]
  - Neoplasm malignant [Unknown]
  - Hepatic cirrhosis [Unknown]
  - Endotracheal intubation complication [Unknown]
  - Arrhythmia [Unknown]
  - Hyperthermia malignant [Unknown]
  - Myocardial infarction [Unknown]
  - Cerebrovascular accident [Unknown]
  - Transient ischaemic attack [Unknown]
  - Hepatitis [Unknown]
  - Heart rate decreased [Unknown]
  - Tuberculosis [Unknown]
  - Diabetes mellitus [Unknown]
  - Anxiety [Unknown]
  - Pain [Unknown]
  - Discomfort [Unknown]
  - Emotional distress [Unknown]
  - Impaired quality of life [Unknown]
  - Muscle spasms [Unknown]
  - Amenorrhoea [Unknown]
  - Headache [Not Recovered/Not Resolved]
  - Tinnitus [Not Recovered/Not Resolved]
  - Body mass index increased [Unknown]
  - Hyperphagia [Unknown]
  - Arthralgia [Unknown]
  - Back pain [Unknown]
  - Gait disturbance [Unknown]
  - Joint swelling [Unknown]
  - Neck pain [Unknown]
  - Musculoskeletal stiffness [Unknown]
  - Dizziness [Unknown]
  - Appetite disorder [Unknown]
  - Weight increased [Unknown]
  - Blood pressure decreased [Unknown]
  - Paraesthesia [Unknown]
  - Blood thyroid stimulating hormone decreased [Unknown]
  - Migraine [Unknown]
  - Thyroid mass [Unknown]
  - Muscular weakness [Unknown]
  - Abdominal pain upper [Unknown]
  - Cerumen impaction [Unknown]
  - Large intestine polyp [Unknown]
  - Haemorrhoids [Unknown]
  - Blood pressure increased [Unknown]
  - Thyroid stimulating immunoglobulin increased [Recovered/Resolved]
  - Tobacco abuse [Unknown]
  - Pain in extremity [Unknown]
  - Plantar fasciitis [Unknown]
  - Tenosynovitis [Unknown]
  - Dysphonia [Recovering/Resolving]
  - Gastrooesophageal reflux disease [Unknown]
  - Asthma [Unknown]
  - Coronary artery disease [Unknown]
  - Positive airway pressure therapy [Unknown]
  - Procedural nausea [Unknown]
  - Procedural vomiting [Unknown]
  - Pseudocholinesterase deficiency [Unknown]
  - Chronic obstructive pulmonary disease [Unknown]
  - Myalgia [Unknown]
  - Product use complaint [Unknown]
  - Fatigue [Unknown]

NARRATIVE: CASE EVENT DATE: 20220101
